FAERS Safety Report 6360378-9 (Version None)
Quarter: 2009Q3

REPORT INFORMATION
  Report Type: 
  Country: None (occurrence: None)
  Receive Date: 20090917
  Receipt Date: 20090908
  Transmission Date: 20100115
  Serious: Yes (Hospitalization)
  Sender: FDA-Public Use
  Company Number: AR-PFIZER INC-2009265639

PATIENT
  Age: 56 Year

DRUGS (5)
  1. IRINOTECAN HCL [Suspect]
     Indication: COLORECTAL CANCER METASTATIC
     Dosage: 510 MG, CYCLIC
     Route: 042
     Dates: start: 20090701, end: 20090819
  2. CETUXIMAB [Suspect]
     Indication: COLORECTAL CANCER METASTATIC
     Dosage: 425 MG, CYCLIC
     Route: 042
     Dates: start: 20090701, end: 20090819
  3. BRIVANIB ALANINATE [Suspect]
     Indication: COLORECTAL CANCER METASTATIC
     Dosage: 600 MG, 1X/DAY
     Route: 048
     Dates: start: 20090624, end: 20090819
  4. PLACEBO [Suspect]
     Indication: COLORECTAL CANCER METASTATIC
     Dosage: UNK
     Route: 048
     Dates: start: 20090624, end: 20090819
  5. CLONAZEPAM [Concomitant]
     Dosage: UNK
     Dates: start: 19970101

REACTIONS (1)
  - OESOPHAGEAL SPASM [None]
